FAERS Safety Report 4398879-5 (Version None)
Quarter: 2004Q2

REPORT INFORMATION
  Report Type: 
  Country: None (occurrence: None)
  Receive Date: 20040621
  Receipt Date: 20040213
  Transmission Date: 20050107
  Serious: Yes (Death)
  Sender: FDA-Public Use
  Company Number: USA-2003-0007197

PATIENT
  Age: 27 Year
  Sex: Female
  Weight: 90.7 kg

DRUGS (13)
  1. OXYCODONE HCL [Suspect]
     Indication: PAIN
     Dosage: MG
  2. HYDROCODONE BITARTRATE [Suspect]
  3. CARISOPRODOL [Suspect]
  4. MEPROBAMATE [Suspect]
  5. ETHANOL (ETHANOL) [Suspect]
  6. NICOTINE [Suspect]
  7. PROPOXYPHENE (DEXTROPPROPOXYPHENE) [Suspect]
  8. AMITRIPTYLINE HCL [Suspect]
     Indication: DEPRESSION
  9. MARIJUANA (CANNABIS) [Suspect]
     Dosage: INHALATION
     Route: 055
  10. VALIUM [Suspect]
  11. ZOLOFT [Suspect]
     Indication: DEPRESSION
  12. CAFFEINE (CAFFEINE) [Suspect]
  13. AVENTYL HCL [Suspect]
     Indication: DEPRESSION

REACTIONS (1)
  - ACCIDENTAL OVERDOSE [None]
